FAERS Safety Report 17888249 (Version 2)
Quarter: 2020Q3

REPORT INFORMATION
  Report Type: Spontaneous
  Country: US (occurrence: US)
  Receive Date: 20200612
  Receipt Date: 20200702
  Transmission Date: 20201103
  Serious: Yes (Hospitalization, Other)
  Sender: FDA-Public Use
  Company Number: US-ASTRAZENECA-2020SE74691

PATIENT
  Age: 22617 Day
  Sex: Female
  Weight: 67.1 kg

DRUGS (16)
  1. METFORMIN [Concomitant]
     Active Substance: METFORMIN HYDROCHLORIDE
  2. MULTIVITAMIN [Concomitant]
     Active Substance: VITAMINS
  3. TYLENOL [Concomitant]
     Active Substance: ACETAMINOPHEN
  4. CHANTIX [Concomitant]
     Active Substance: VARENICLINE TARTRATE
  5. METOPROLOL. [Suspect]
     Active Substance: METOPROLOL
     Route: 065
  6. LISINOPRIL. [Concomitant]
     Active Substance: LISINOPRIL
  7. IMFINZI [Suspect]
     Active Substance: DURVALUMAB
     Indication: NON-SMALL CELL LUNG CANCER STAGE III
     Route: 042
  8. ASPIRIN. [Concomitant]
     Active Substance: ASPIRIN
  9. LIPITOR [Concomitant]
     Active Substance: ATORVASTATIN CALCIUM
  10. COMPAZINE [Concomitant]
     Active Substance: PROCHLORPERAZINE MALEATE
  11. PRILOSEC [Suspect]
     Active Substance: OMEPRAZOLE MAGNESIUM
     Route: 048
  12. ANORO [Concomitant]
     Active Substance: UMECLIDINIUM BROMIDE\VILANTEROL TRIFENATATE
  13. DICLOFANAC [Concomitant]
  14. LEVEMIR [Concomitant]
     Active Substance: INSULIN DETEMIR
  15. RANEXA [Concomitant]
     Active Substance: RANOLAZINE
  16. LINAGLIPTIN [Concomitant]
     Active Substance: LINAGLIPTIN

REACTIONS (4)
  - Colitis [Unknown]
  - Large intestine perforation [Not Recovered/Not Resolved]
  - Diarrhoea [Recovered/Resolved]
  - Non-small cell lung cancer stage III [Unknown]

NARRATIVE: CASE EVENT DATE: 20200508
